FAERS Safety Report 11052787 (Version 1)
Quarter: 2015Q2

REPORT INFORMATION
  Report Type: Spontaneous
  Country: JP (occurrence: JP)
  Receive Date: 20150421
  Receipt Date: 20150421
  Transmission Date: 20150821
  Serious: Yes (Other)
  Sender: FDA-Public Use
  Company Number: GXJP2015JP000739

PATIENT
  Age: 68 Year
  Sex: Male

DRUGS (2)
  1. DOCETAXEL. [Suspect]
     Active Substance: DOCETAXEL
     Indication: PROSTATE CANCER
     Dosage: 120 MG, QMO
     Route: 065
  2. DOCETAXEL. [Suspect]
     Active Substance: DOCETAXEL
     Indication: METASTASES TO BONE

REACTIONS (5)
  - Erythema [Recovering/Resolving]
  - Mobility decreased [Unknown]
  - Tenderness [Unknown]
  - Sclerema [Not Recovered/Not Resolved]
  - Oedema peripheral [Recovering/Resolving]
